FAERS Safety Report 7492229-3 (Version None)
Quarter: 2011Q2

REPORT INFORMATION
  Report Type: 
  Country: None (occurrence: None)
  Receive Date: 20110519
  Receipt Date: 20101201
  Transmission Date: 20111010
  Serious: No
  Sender: FDA-Public Use
  Company Number: US-NOVEN-ALL1-2010-06295

PATIENT
  Sex: Female
  Weight: 90.703 kg

DRUGS (4)
  1. UNSPECIFIED SUPPLEMENTS [Concomitant]
     Dosage: UNK MG, 1X/DAY:QD
     Route: 048
  2. ADDERALL 10 [Concomitant]
     Dosage: UNK MG, AS REQ'D
     Route: 048
  3. ADDERALL XR 10 [Concomitant]
     Dosage: UNK MG, AS REQ'D
     Route: 048
     Dates: start: 20010101
  4. DAYTRANA [Suspect]
     Dosage: 30 MG, AS REQ'D
     Route: 062
     Dates: start: 20060101

REACTIONS (2)
  - CARDIAC FLUTTER [None]
  - OFF LABEL USE [None]
